FAERS Safety Report 12642723 (Version 3)
Quarter: 2016Q4

REPORT INFORMATION
  Report Type: Report from Study
  Country: US (occurrence: US)
  Receive Date: 20160810
  Receipt Date: 20161021
  Transmission Date: 20170207
  Serious: Yes (Other)
  Sender: FDA-Public Use
  Company Number: US-AMGEN-USASL2016101206

PATIENT
  Age: 77 Year
  Sex: Male

DRUGS (2)
  1. KYPROLIS [Suspect]
     Active Substance: CARFILZOMIB
     Indication: PLASMA CELL MYELOMA
     Dosage: UNK
     Route: 065
  2. NEUPOGEN [Concomitant]
     Active Substance: FILGRASTIM
     Dosage: 2 TIMES/WK TH/FRI

REACTIONS (5)
  - Fluid retention [Unknown]
  - Dyspnoea [Unknown]
  - White blood cell count decreased [Unknown]
  - Fatigue [Unknown]
  - Localised infection [Not Recovered/Not Resolved]
